FAERS Safety Report 6677943-1 (Version None)
Quarter: 2010Q2

REPORT INFORMATION
  Report Type: 
  Country: None (occurrence: None)
  Receive Date: 20100412
  Receipt Date: 20100408
  Transmission Date: 20101027
  Serious: Yes (Hospitalization)
  Sender: FDA-Public Use
  Company Number: US-ELI_LILLY_AND_COMPANY-US201003008696

PATIENT
  Sex: Female
  Weight: 72.7 kg

DRUGS (4)
  1. DULOXETINE HYDROCHLORIDE [Suspect]
     Indication: OSTEOARTHRITIS
     Dosage: 3 D/F, DAILY (1/D)
     Route: 048
     Dates: start: 20100324
  2. IBUPROFEN [Concomitant]
     Indication: ARTHRALGIA
     Dosage: UNK, UNK
     Dates: start: 20070101
  3. MULTI-VITAMIN [Concomitant]
     Indication: MEDICAL DIET
     Dates: start: 19900101
  4. OMEPRAZOLE [Concomitant]
     Indication: PROPHYLAXIS
     Dates: start: 20100306

REACTIONS (1)
  - SYNCOPE [None]
